FAERS Safety Report 24209330 (Version 2)
Quarter: 2025Q3

REPORT INFORMATION
  Report Type: Spontaneous
  Country: None (occurrence: CA)
  Receive Date: 20240814
  Receipt Date: 20250804
  Transmission Date: 20251020
  Serious: Yes (Other)
  Sender: MYLAN
  Company Number: CA-MYLANLABS-2017017975

PATIENT
  Sex: Female

DRUGS (32)
  1. REVATIO [Suspect]
     Active Substance: SILDENAFIL CITRATE
     Indication: Pulmonary hypertension
     Dosage: 20 MILLIGRAM, TID (THREE TIMES A DAY))
     Dates: start: 20140401
  2. REVATIO [Suspect]
     Active Substance: SILDENAFIL CITRATE
     Dosage: 20 MILLIGRAM, TID (THREE TIMES A DAY))
     Route: 048
     Dates: start: 20140401
  3. REVATIO [Suspect]
     Active Substance: SILDENAFIL CITRATE
     Dosage: 20 MILLIGRAM, TID (THREE TIMES A DAY))
     Route: 048
     Dates: start: 20140401
  4. REVATIO [Suspect]
     Active Substance: SILDENAFIL CITRATE
     Dosage: 20 MILLIGRAM, TID (THREE TIMES A DAY))
     Dates: start: 20140401
  5. RABEPRAZOLE [Concomitant]
     Active Substance: RABEPRAZOLE
  6. RABEPRAZOLE [Concomitant]
     Active Substance: RABEPRAZOLE
     Route: 065
  7. RABEPRAZOLE [Concomitant]
     Active Substance: RABEPRAZOLE
     Route: 065
  8. RABEPRAZOLE [Concomitant]
     Active Substance: RABEPRAZOLE
  9. FUROSEMIDE [Concomitant]
     Active Substance: FUROSEMIDE
  10. FUROSEMIDE [Concomitant]
     Active Substance: FUROSEMIDE
     Route: 065
  11. FUROSEMIDE [Concomitant]
     Active Substance: FUROSEMIDE
     Route: 065
  12. FUROSEMIDE [Concomitant]
     Active Substance: FUROSEMIDE
  13. AMLODIPINE [Concomitant]
     Active Substance: AMLODIPINE BESYLATE
  14. AMLODIPINE [Concomitant]
     Active Substance: AMLODIPINE BESYLATE
     Route: 065
  15. AMLODIPINE [Concomitant]
     Active Substance: AMLODIPINE BESYLATE
     Route: 065
  16. AMLODIPINE [Concomitant]
     Active Substance: AMLODIPINE BESYLATE
  17. WARFARIN [Concomitant]
     Active Substance: WARFARIN
  18. WARFARIN [Concomitant]
     Active Substance: WARFARIN
     Route: 065
  19. WARFARIN [Concomitant]
     Active Substance: WARFARIN
     Route: 065
  20. WARFARIN [Concomitant]
     Active Substance: WARFARIN
  21. SLOW K [Concomitant]
     Active Substance: POTASSIUM CHLORIDE
  22. SLOW K [Concomitant]
     Active Substance: POTASSIUM CHLORIDE
     Route: 065
  23. SLOW K [Concomitant]
     Active Substance: POTASSIUM CHLORIDE
     Route: 065
  24. SLOW K [Concomitant]
     Active Substance: POTASSIUM CHLORIDE
  25. AMLODIPINE [Concomitant]
     Active Substance: AMLODIPINE BESYLATE
  26. AMLODIPINE [Concomitant]
     Active Substance: AMLODIPINE BESYLATE
     Route: 065
  27. AMLODIPINE [Concomitant]
     Active Substance: AMLODIPINE BESYLATE
     Route: 065
  28. AMLODIPINE [Concomitant]
     Active Substance: AMLODIPINE BESYLATE
  29. SLOW K [Concomitant]
     Active Substance: POTASSIUM CHLORIDE
  30. SLOW K [Concomitant]
     Active Substance: POTASSIUM CHLORIDE
     Route: 065
  31. SLOW K [Concomitant]
     Active Substance: POTASSIUM CHLORIDE
     Route: 065
  32. SLOW K [Concomitant]
     Active Substance: POTASSIUM CHLORIDE

REACTIONS (2)
  - Hip surgery [Not Recovered/Not Resolved]
  - Nasopharyngitis [Not Recovered/Not Resolved]

NARRATIVE: CASE EVENT DATE: 20160101
